FAERS Safety Report 4491283-0 (Version None)
Quarter: 2004Q3

REPORT INFORMATION
  Report Type: 
  Country: None (occurrence: None)
  Receive Date: 20040921
  Receipt Date: 20040316
  Transmission Date: 20050211
  Serious: Yes (Death)
  Sender: FDA-Public Use
  Company Number: 163-20785-04030414 (0)

PATIENT
  Age: 46 Year
  Sex: Male

DRUGS (3)
  1. THALOMID [Suspect]
     Indication: MALIGNANT MELANOMA STAGE IV
     Dosage: 150 MG, QD, ORAL
     Route: 048
     Dates: start: 20030922, end: 20031201
  2. INTERFERON (INTERFERON) [Concomitant]
  3. TEMODAR [Concomitant]

REACTIONS (2)
  - DEATH [None]
  - DISEASE PROGRESSION [None]
